FAERS Safety Report 18629635 (Version 7)
Quarter: 2024Q2

REPORT INFORMATION
  Report Type: Spontaneous
  Country: CA (occurrence: CA)
  Receive Date: 20201217
  Receipt Date: 20240529
  Transmission Date: 20240715
  Serious: Yes (Other)
  Sender: FDA-Public Use
  Company Number: CA-JNJFOC-20201137439

PATIENT
  Age: 56 Year
  Sex: Female

DRUGS (30)
  1. TOPAMAX [Interacting]
     Active Substance: TOPIRAMATE
     Indication: Migraine
     Route: 048
  2. TOPAMAX [Interacting]
     Active Substance: TOPIRAMATE
     Route: 048
  3. PROPRANOLOL HYDROCHLORIDE [Suspect]
     Active Substance: PROPRANOLOL HYDROCHLORIDE
     Indication: Toxicity to various agents
     Route: 065
  4. PROPRANOLOL HYDROCHLORIDE [Suspect]
     Active Substance: PROPRANOLOL HYDROCHLORIDE
     Indication: Nephropathy toxic
  5. PROPRANOLOL HYDROCHLORIDE [Suspect]
     Active Substance: PROPRANOLOL HYDROCHLORIDE
     Indication: Hypertension
  6. PROPRANOLOL HYDROCHLORIDE [Suspect]
     Active Substance: PROPRANOLOL HYDROCHLORIDE
     Indication: Migraine
  7. PROPRANOLOL [Suspect]
     Active Substance: PROPRANOLOL HYDROCHLORIDE
     Indication: Migraine
     Route: 065
  8. PROPRANOLOL [Suspect]
     Active Substance: PROPRANOLOL HYDROCHLORIDE
     Indication: Hypertension
  9. PROPRANOLOL [Suspect]
     Active Substance: PROPRANOLOL HYDROCHLORIDE
     Indication: Nephropathy toxic
  10. PROPRANOLOL [Suspect]
     Active Substance: PROPRANOLOL HYDROCHLORIDE
     Indication: Toxicity to various agents
  11. CANDESARTAN CILEXETIL [Suspect]
     Active Substance: CANDESARTAN CILEXETIL
     Indication: Migraine
     Route: 048
  12. DULOXETINE [Suspect]
     Active Substance: DULOXETINE
     Indication: Migraine
     Route: 065
  13. GABAPENTIN [Suspect]
     Active Substance: GABAPENTIN
     Indication: Migraine
     Route: 065
  14. MIRTAZAPINE [Suspect]
     Active Substance: MIRTAZAPINE
     Indication: Migraine
     Route: 048
  15. ONDANSETRON [Suspect]
     Active Substance: ONDANSETRON
     Indication: Migraine
     Route: 065
  16. OXYCODONE [Suspect]
     Active Substance: OXYCODONE\OXYCODONE HYDROCHLORIDE
     Indication: Migraine
     Route: 065
  17. PERINDOPRIL ERBUMINE [Suspect]
     Active Substance: PERINDOPRIL ERBUMINE
     Indication: Toxicity to various agents
     Route: 048
  18. PERINDOPRIL ERBUMINE [Suspect]
     Active Substance: PERINDOPRIL ERBUMINE
     Indication: Nephropathy toxic
  19. PERINDOPRIL ERBUMINE [Suspect]
     Active Substance: PERINDOPRIL ERBUMINE
     Indication: Hypertension
  20. PERINDOPRIL ERBUMINE [Suspect]
     Active Substance: PERINDOPRIL ERBUMINE
     Indication: Migraine
  21. AIMOVIG [Suspect]
     Active Substance: ERENUMAB-AOOE
     Indication: Migraine
     Route: 058
  22. INDOMETHACIN [Suspect]
     Active Substance: INDOMETHACIN
     Indication: Migraine
     Route: 065
  23. ELAVIL [Suspect]
     Active Substance: AMITRIPTYLINE HYDROCHLORIDE
     Indication: Migraine
     Route: 065
  24. ONDANSETRON HYDROCHLORIDE [Suspect]
     Active Substance: ONDANSETRON HYDROCHLORIDE
     Indication: Migraine
     Route: 065
  25. PERINDOPRIL [Suspect]
     Active Substance: PERINDOPRIL
     Indication: Toxicity to various agents
     Route: 065
  26. PERINDOPRIL [Suspect]
     Active Substance: PERINDOPRIL
     Indication: Nephropathy toxic
  27. PERINDOPRIL [Suspect]
     Active Substance: PERINDOPRIL
     Indication: Hypertension
  28. DOMPERIDONE [Concomitant]
     Active Substance: DOMPERIDONE
     Indication: Migraine
     Route: 048
  29. DIVALPROEX SODIUM [Concomitant]
     Active Substance: DIVALPROEX SODIUM
     Indication: Migraine
     Route: 065
  30. BOTULINUM TOXIN TYPE A [Concomitant]
     Active Substance: BOTULINUM TOXIN TYPE A
     Indication: Migraine
     Route: 030

REACTIONS (12)
  - Nephropathy toxic [Unknown]
  - Serotonin syndrome [Unknown]
  - Electrocardiogram QT prolonged [Unknown]
  - Mental disorder [Unknown]
  - Fall [Unknown]
  - Hypertension [Unknown]
  - Depressed level of consciousness [Unknown]
  - Contraindicated product administered [Unknown]
  - Drug interaction [Unknown]
  - Toxicity to various agents [Unknown]
  - Drug intolerance [Unknown]
  - Drug ineffective [Unknown]
